FAERS Safety Report 11694381 (Version 1)
Quarter: 2015Q4

REPORT INFORMATION
  Report Type: Spontaneous
  Country: GB (occurrence: GB)
  Receive Date: 20151103
  Receipt Date: 20151103
  Transmission Date: 20160304
  Serious: Yes (Hospitalization)
  Sender: FDA-Public Use
  Company Number: GB-ABBVIE-15P-167-1492954-00

PATIENT
  Age: 60 Year
  Sex: Male
  Weight: 102 kg

DRUGS (4)
  1. POMALIDOMIDE [Suspect]
     Active Substance: POMALIDOMIDE
     Indication: PLASMA CELL MYELOMA
     Dosage: 4 MG DAILY FROM DAYS 1-21 EVERY 28 DAYS
     Route: 048
     Dates: start: 20140117, end: 20150825
  2. SODIUM CLODRONATE [Concomitant]
     Active Substance: CLODRONIC ACID
     Indication: PRODUCT USED FOR UNKNOWN INDICATION
  3. CLARITHROMYCIN. [Suspect]
     Active Substance: CLARITHROMYCIN
     Indication: ADJUVANT THERAPY
     Route: 048
     Dates: start: 20150702, end: 20150825
  4. DEXAMETHASONE. [Suspect]
     Active Substance: DEXAMETHASONE
     Indication: PLASMA CELL MYELOMA
     Route: 048
     Dates: start: 20140117, end: 20150925

REACTIONS (5)
  - Paranoia [Unknown]
  - Encephalitis [Recovering/Resolving]
  - Hallucination [Unknown]
  - Confusional state [Unknown]
  - Complex partial seizures [Unknown]

NARRATIVE: CASE EVENT DATE: 20150820
